FAERS Safety Report 24382763 (Version 1)
Quarter: 2024Q4

REPORT INFORMATION
  Report Type: Spontaneous
  Country: US (occurrence: US)
  Receive Date: 20241001
  Receipt Date: 20241001
  Transmission Date: 20250115
  Serious: Yes (Other)
  Sender: MYLAN
  Company Number: US-MYLANLABS-2024M1086498

PATIENT
  Age: 79 Year
  Sex: Male

DRUGS (4)
  1. HYDROCORTISONE [Suspect]
     Active Substance: HYDROCORTISONE
     Indication: Skin plaque
     Dosage: UNK
     Route: 065
  2. TERBINAFINE [Concomitant]
     Active Substance: TERBINAFINE
     Indication: Skin plaque
     Dosage: UNK
     Route: 048
  3. KETOCONAZOLE [Concomitant]
     Active Substance: KETOCONAZOLE
     Indication: Skin plaque
     Dosage: UNK
     Route: 065
  4. ZINC OXIDE [Concomitant]
     Active Substance: ZINC OXIDE
     Indication: Skin plaque
     Dosage: UNK
     Route: 065

REACTIONS (1)
  - Drug ineffective [Unknown]
